FAERS Safety Report 24074482 (Version 1)
Quarter: 2024Q3

REPORT INFORMATION
  Report Type: Spontaneous
  Country: CA (occurrence: None)
  Receive Date: 20240710
  Receipt Date: 20240710
  Transmission Date: 20241017
  Serious: Yes (Other)
  Sender: ORION
  Company Number: CA-PFIZER INC-202400207747

PATIENT
  Age: 59 Year
  Sex: Female

DRUGS (7)
  1. METHOTREXATE [Suspect]
     Active Substance: METHOTREXATE
     Indication: Rheumatoid arthritis
     Dates: start: 2005
  2. METHOTREXATE [Suspect]
     Active Substance: METHOTREXATE
     Dates: start: 2017, end: 2017
  3. METHOTREXATE [Suspect]
     Active Substance: METHOTREXATE
     Dates: start: 2010, end: 2019
  4. ETANERCEPT [Concomitant]
     Active Substance: ETANERCEPT
     Dosage: ONGOING
     Dates: start: 20190408
  5. LEFLUNOMIDE [Concomitant]
     Active Substance: LEFLUNOMIDE
     Dosage: ONGOING
  6. SULFASALAZINE [Concomitant]
     Active Substance: SULFASALAZINE
     Indication: Rheumatoid arthritis
     Dates: start: 2017, end: 2017
  7. SULFASALAZINE [Concomitant]
     Active Substance: SULFASALAZINE
     Dates: start: 20190314, end: 20190326

REACTIONS (5)
  - Rheumatoid arthritis-associated interstitial lung disease [Unknown]
  - Nausea [Unknown]
  - Vomiting [Unknown]
  - Fatigue [Unknown]
  - Abdominal discomfort [Unknown]
